FAERS Safety Report 4901489-1 (Version None)
Quarter: 2006Q1

REPORT INFORMATION
  Report Type: 
  Country: None (occurrence: None)
  Receive Date: 20060206
  Receipt Date: 20060126
  Transmission Date: 20060701
  Serious: Yes (Hospitalization, Other)
  Sender: FDA-Public Use
  Company Number: US-AVENTIS-200610962US

PATIENT
  Sex: Female

DRUGS (16)
  1. AMARYL [Suspect]
     Indication: DIABETES MELLITUS NON-INSULIN-DEPENDENT
     Route: 048
     Dates: start: 20050101, end: 20051101
  2. AMARYL [Suspect]
     Route: 048
     Dates: start: 20051101, end: 20051118
  3. AMARYL [Suspect]
     Route: 048
     Dates: start: 20051118
  4. DRUG USED IN DIABETES [Suspect]
     Indication: DIABETES MELLITUS NON-INSULIN-DEPENDENT
     Route: 058
     Dates: start: 20050601, end: 20050701
  5. DRUG USED IN DIABETES [Suspect]
     Route: 058
     Dates: start: 20050701, end: 20051116
  6. DRUG USED IN DIABETES [Suspect]
     Route: 058
     Dates: start: 20051101
  7. ACTOS [Suspect]
     Dosage: DOSE: UNK
     Dates: start: 20050601, end: 20051117
  8. ACTOS [Suspect]
     Dosage: DOSE: UNK
     Dates: start: 20051118
  9. GLUCOPHAGE [Concomitant]
     Dosage: DOSE: UNK
  10. GLUCOPHAGE [Concomitant]
     Dosage: DOSE: UNK
     Dates: start: 20051118
  11. LIPITOR [Concomitant]
     Dosage: DOSE: UNK
  12. COREG [Concomitant]
     Dosage: DOSE: UNK
  13. LISINOPRIL W/HYDROCHLOROTHIAZIDE [Concomitant]
     Dosage: DOSE: UNK
  14. LEVOTHROID [Concomitant]
     Dosage: DOSE: UNK
  15. ZOLOFT [Concomitant]
     Dosage: DOSE: UNK
  16. ASPIRIN [Concomitant]

REACTIONS (18)
  - ABDOMINAL DISCOMFORT [None]
  - ALCOHOL USE [None]
  - ANAEMIA [None]
  - BLOOD GLUCOSE DECREASED [None]
  - BLOOD GLUCOSE INCREASED [None]
  - BREAST HAEMATOMA [None]
  - CARDIAC MURMUR [None]
  - CEREBRAL CYST [None]
  - CEREBRAL VENTRICLE DILATATION [None]
  - DEPRESSED LEVEL OF CONSCIOUSNESS [None]
  - HAEMATOMA [None]
  - HYDROCEPHALUS [None]
  - HYPOGLYCAEMIA [None]
  - MALAISE [None]
  - NAUSEA [None]
  - NEUROGLYCOPENIA [None]
  - PURPURA [None]
  - WEIGHT DECREASED [None]
